FAERS Safety Report 4436362-9 (Version None)
Quarter: 2004Q3

REPORT INFORMATION
  Report Type: 
  Country: None (occurrence: None)
  Receive Date: 20040728
  Receipt Date: 20040107
  Transmission Date: 20050211
  Serious: Yes (Death)
  Sender: FDA-Public Use
  Company Number: 204079

PATIENT
  Age: 80 Year
  Sex: Female

DRUGS (2)
  1. RITUXAN [Suspect]
     Indication: LYMPHOMA
     Dates: start: 20030909, end: 20031120
  2. LIPOSOMAL DOXORUBICIN (DOXORUBICIN,DOXORUBICIN HYDROCHLORIDE) [Suspect]
     Dosage: 35 MG/M2

REACTIONS (3)
  - DEHYDRATION [None]
  - DIARRHOEA [None]
  - NEOPLASM PROGRESSION [None]
